FAERS Safety Report 14116853 (Version 3)
Quarter: 2017Q4

REPORT INFORMATION
  Report Type: Spontaneous
  Country: US (occurrence: US)
  Receive Date: 20171023
  Receipt Date: 20171114
  Transmission Date: 20180321
  Serious: Yes (Other)
  Sender: FDA-Public Use
  Company Number: US-ENDO PHARMACEUTICALS INC-2017-005529

PATIENT
  Age: 7 Year
  Sex: Male
  Weight: 22.7 kg

DRUGS (1)
  1. SUPPRELIN LA [Suspect]
     Active Substance: HISTRELIN ACETATE
     Indication: PRECOCIOUS PUBERTY
     Dosage: 50 MG, UNKNOWN
     Route: 058
     Dates: start: 20170503

REACTIONS (8)
  - Skin mass [Not Recovered/Not Resolved]
  - Human chorionic gonadotropin increased [Unknown]
  - Migration of implanted drug [Not Recovered/Not Resolved]
  - Eczema [Recovered/Resolved]
  - Device breakage [Unknown]
  - Drug ineffective [Unknown]
  - Aggression [Unknown]
  - Blood testosterone increased [Unknown]

NARRATIVE: CASE EVENT DATE: 2017
